FAERS Safety Report 23255385 (Version 1)
Quarter: 2023Q4

REPORT INFORMATION
  Report Type: Spontaneous
  Country: US (occurrence: US)
  Receive Date: 20231203
  Receipt Date: 20231203
  Transmission Date: 20240109
  Serious: Yes (Other)
  Sender: FDA-Public Use
  Company Number: US-TORRENT-00012997

PATIENT
  Age: 44 Year
  Sex: Male

DRUGS (2)
  1. OLANZAPINE [Suspect]
     Active Substance: OLANZAPINE
     Indication: Antipsychotic therapy
     Dosage: UNKNOWN
     Route: 065
  2. METFORMIN [Concomitant]
     Active Substance: METFORMIN HYDROCHLORIDE
     Indication: Type 2 diabetes mellitus
     Dosage: MONOTHERAPY
     Route: 065

REACTIONS (4)
  - Ballismus [Recovering/Resolving]
  - Diabetic ketoacidosis [Recovered/Resolved]
  - Chorea [Recovering/Resolving]
  - Diabetes mellitus [Recovered/Resolved]
